FAERS Safety Report 7026639-5 (Version None)
Quarter: 2010Q4

REPORT INFORMATION
  Report Type: 
  Country: None (occurrence: None)
  Receive Date: 20101004
  Receipt Date: 20100922
  Transmission Date: 20110411
  Serious: Yes (Other)
  Sender: FDA-Public Use
  Company Number: US-SANOFI-AVENTIS-2010SA050588

PATIENT
  Age: 76 Year
  Sex: Female

DRUGS (16)
  1. MULTAQ [Suspect]
     Indication: ATRIAL FIBRILLATION
     Route: 048
     Dates: start: 20100301
  2. SYNTHROID [Concomitant]
  3. ANTIACID [Concomitant]
  4. COZAAR [Concomitant]
  5. METOPROLOL TARTRATE [Concomitant]
  6. HYDROCHLOROTHIAZIDE [Concomitant]
  7. PLAVIX [Concomitant]
  8. ASPIRIN [Concomitant]
  9. VITAMINS [Concomitant]
  10. CALCIUM [Concomitant]
  11. GLUCOSAMINE [Concomitant]
  12. CHONDROITIN SULFATE [Concomitant]
  13. LOVAZA [Concomitant]
  14. VITAMIN D [Concomitant]
  15. PRAVASTATIN [Concomitant]
  16. PEPCID [Concomitant]

REACTIONS (1)
  - ATRIAL FIBRILLATION [None]
